FAERS Safety Report 9608653 (Version 1)
Quarter: 2013Q4

REPORT INFORMATION
  Report Type: Spontaneous
  Country: US (occurrence: US)
  Receive Date: 20131009
  Receipt Date: 20131009
  Transmission Date: 20140711
  Serious: No
  Sender: FDA-Public Use
  Company Number: US-009507513-1310USA003683

PATIENT
  Sex: Female

DRUGS (1)
  1. TINACTIN CREAM [Suspect]
     Indication: BURNING SENSATION
     Dosage: UNK, UNKNOWN
     Route: 061

REACTIONS (1)
  - Condition aggravated [Not Recovered/Not Resolved]
